FAERS Safety Report 9565187 (Version 3)
Quarter: 2013Q4

REPORT INFORMATION
  Report Type: Report from Study
  Country: JP (occurrence: JP)
  Receive Date: 20130930
  Receipt Date: 20131209
  Transmission Date: 20140711
  Serious: Yes (Other)
  Sender: FDA-Public Use
  Company Number: JP-PFIZER INC-2013277471

PATIENT
  Age: 75 Year
  Sex: Male

DRUGS (1)
  1. LYRICA [Suspect]
     Indication: LUMBAR RADICULOPATHY
     Dosage: 75 MG, 1X/DAY, AFTER BREAKFAST
     Route: 048
     Dates: start: 20110406, end: 20110420

REACTIONS (2)
  - Hallucination, auditory [Recovered/Resolved]
  - Hallucination [Recovered/Resolved]
